FAERS Safety Report 17883321 (Version 1)
Quarter: 2020Q2

REPORT INFORMATION
  Report Type: Spontaneous
  Country: NL (occurrence: NL)
  Receive Date: 20200611
  Receipt Date: 20200611
  Transmission Date: 20200714
  Serious: Yes (Hospitalization)
  Sender: FDA-Public Use
  Company Number: NL-TEVA-2020-NL-1246663

PATIENT
  Age: 51 Year
  Sex: Male

DRUGS (4)
  1. CAPECITABINE. [Suspect]
     Active Substance: CAPECITABINE
     Indication: COLON CANCER
     Dosage: 2 DD 4 PIECES, 4 DOSAGE FORMS
     Dates: start: 202004, end: 20200512
  2. OLANZAPINE. [Concomitant]
     Active Substance: OLANZAPINE
     Dosage: 5 MG (MILLIGRAM), THERAPY START DATE AND END DATE: ASKED BUT UNKNOWN
  3. URSOCHOL (URSODEOXYCHOLZUUR) [Concomitant]
     Dosage: THERAPY START DATE AND END DATE: ASKED BUT UNKNOWN
  4. PAROXETINE. [Concomitant]
     Active Substance: PAROXETINE
     Dosage: THERAPY START DATE AND END DATE: ASKED BUT UNKNOWN

REACTIONS (1)
  - Arteriospasm coronary [Recovering/Resolving]

NARRATIVE: CASE EVENT DATE: 20200501
